FAERS Safety Report 12010512 (Version 1)
Quarter: 2016Q1

REPORT INFORMATION
  Report Type: Spontaneous
  Country: US (occurrence: US)
  Receive Date: 20160205
  Receipt Date: 20160205
  Transmission Date: 20160526
  Serious: No
  Sender: FDA-Public Use
  Company Number: US-FRI-1000081437

PATIENT
  Sex: Female

DRUGS (1)
  1. FETZIMA [Suspect]
     Active Substance: LEVOMILNACIPRAN HYDROCHLORIDE
     Dosage: 2 TIMES AS MUCH
     Route: 048

REACTIONS (2)
  - Intentional overdose [Not Recovered/Not Resolved]
  - Alopecia [Not Recovered/Not Resolved]
